FAERS Safety Report 13134389 (Version 3)
Quarter: 2017Q2

REPORT INFORMATION
  Report Type: Report from Study
  Country: CA (occurrence: CA)
  Receive Date: 20170120
  Receipt Date: 20170519
  Transmission Date: 20170830
  Serious: Yes (Hospitalization)
  Sender: FDA-Public Use
  Company Number: CA-HLSUS-2017-CA-000055

PATIENT
  Age: 30 Year
  Sex: Female

DRUGS (9)
  1. PROPRANOLOL [Concomitant]
     Active Substance: PROPRANOLOL HYDROCHLORIDE
     Indication: TACHYCARDIA
     Dosage: 15 MG THREE TIMES A DAY
     Route: 048
     Dates: start: 201610
  2. RISPERIDONE. [Concomitant]
     Active Substance: RISPERIDONE
     Indication: HALLUCINATION, AUDITORY
     Dosage: 1 MG TWICE A DAY AS NEEDED
     Route: 048
     Dates: start: 201610
  3. BENZTROPINE [Concomitant]
     Active Substance: BENZTROPINE
     Indication: EXTRAPYRAMIDAL DISORDER
     Dosage: 2 MG TWICE A DAY AS NEEDED
     Route: 048
  4. CELEXA [Concomitant]
     Active Substance: CITALOPRAM HYDROBROMIDE
     Indication: DEPRESSION
     Dosage: 60MG
     Route: 048
     Dates: start: 20161214
  5. COGENTIN [Concomitant]
     Active Substance: BENZTROPINE MESYLATE
     Dosage: 1MG TWICE DAILY
     Route: 048
  6. ATROVENT [Concomitant]
     Active Substance: IPRATROPIUM BROMIDE
     Indication: SALIVARY HYPERSECRETION
     Dosage: 1-2 SPRAYS TWICE A DAY AS NEEDED
     Route: 060
     Dates: start: 201703
  7. ATIVAN [Concomitant]
     Active Substance: LORAZEPAM
     Indication: HALLUCINATION, AUDITORY
     Dosage: 1 MG DAILY BED TIME AS NEEDED
     Dates: start: 201610
  8. CLOZARIL [Suspect]
     Active Substance: CLOZAPINE
     Indication: SCHIZOPHRENIA
     Dosage: 125 MG DAILY MORNING, 150 MG DAILY SUPPER TIME AND 150 MG DAILY BED TIME
     Route: 048
     Dates: start: 20161019
  9. PROPRANOLOL [Concomitant]
     Active Substance: PROPRANOLOL HYDROCHLORIDE
     Dosage: 10 MG TWICE DAY AND 30MG DAILY BED TIME
     Route: 048

REACTIONS (4)
  - Urinary tract infection [Recovered/Resolved]
  - Fracture [Recovered/Resolved]
  - Salivary hypersecretion [Unknown]
  - Neutrophilia [Unknown]

NARRATIVE: CASE EVENT DATE: 20161101
